FAERS Safety Report 5811919-9 (Version None)
Quarter: 2008Q3

REPORT INFORMATION
  Report Type: 
  Country: None (occurrence: None)
  Receive Date: 20080716
  Receipt Date: 20080711
  Transmission Date: 20090109
  Serious: Yes (Life-Threatening)
  Sender: FDA-Public Use
  Company Number: US-SANOFI-SYNTHELABO-F03200800036

PATIENT
  Sex: Male
  Weight: 64 kg

DRUGS (4)
  1. OXALIPLATIN [Suspect]
     Indication: RECTAL CANCER
     Route: 042
     Dates: start: 20071120, end: 20071120
  2. LEUCOVORIN CALCIUM [Suspect]
     Indication: RECTAL CANCER
     Route: 042
     Dates: start: 20071120, end: 20071120
  3. FLUOROURACIL [Suspect]
     Indication: RECTAL CANCER
     Route: 042
     Dates: start: 20071120, end: 20071120
  4. AVASTIN [Suspect]
     Indication: RECTAL CANCER
     Route: 042
     Dates: start: 20071120, end: 20071120

REACTIONS (4)
  - ANASTOMOTIC LEAK [None]
  - CONFUSIONAL STATE [None]
  - ILEUS [None]
  - POSTOPERATIVE WOUND INFECTION [None]
